FAERS Safety Report 18853671 (Version 1)
Quarter: 2021Q1

REPORT INFORMATION
  Report Type: Spontaneous
  Country: US (occurrence: US)
  Receive Date: 20210205
  Receipt Date: 20210205
  Transmission Date: 20210420
  Serious: No
  Sender: FDA-Public Use
  Company Number: US-RECORDATI RARE DISEASES-2106398

PATIENT
  Age: 31 Year
  Sex: Male

DRUGS (2)
  1. CYSTADANE [Suspect]
     Active Substance: BETAINE
     Dates: start: 2020
  2. CYSTADANE [Suspect]
     Active Substance: BETAINE
     Indication: HOMOCYSTINURIA
     Dates: start: 20200724, end: 202011

REACTIONS (2)
  - Hypersensitivity [Unknown]
  - Migraine [Unknown]

NARRATIVE: CASE EVENT DATE: 2020
